FAERS Safety Report 20094044 (Version 2)
Quarter: 2021Q4

REPORT INFORMATION
  Report Type: Spontaneous
  Country: PL (occurrence: PL)
  Receive Date: 20211121
  Receipt Date: 20211126
  Transmission Date: 20220304
  Serious: Yes (Life-Threatening, Other)
  Sender: FDA-Public Use
  Company Number: PL-SCIENCEPH-NEOP-L-092

PATIENT
  Age: 73 Year
  Sex: Male

DRUGS (12)
  1. ACYCLOVIR [Suspect]
     Active Substance: ACYCLOVIR
     Indication: Antiviral prophylaxis
     Dosage: UNK
     Route: 065
     Dates: start: 201707
  2. BORTEZOMIB [Suspect]
     Active Substance: BORTEZOMIB
     Indication: Plasma cell myeloma
     Dosage: 1.3 MILLIGRAM/SQ. METER(1.3 MG/M2 ON DAYS 1, 4, 8, AND 11 OF THE TREATMENT CYCLES)
     Route: 065
     Dates: start: 201707
  3. BORTEZOMIB [Suspect]
     Active Substance: BORTEZOMIB
     Indication: Plasma cell myeloma
  4. DEXAMETHASONE [Suspect]
     Active Substance: DEXAMETHASONE
     Indication: Plasma cell myeloma
     Dosage: 20 MILLIGRAM(20 MG ON DAYS 1?4 AND 8?11 OF 28-DAY TREATMENT CYCLES.)
     Route: 065
     Dates: start: 201707
  5. DEXAMETHASONE [Suspect]
     Active Substance: DEXAMETHASONE
     Dosage: 10 MILLIGRAM(10 MG ON DAYS 1?4 AND 8?11 FROM CYCLE 4 )
     Route: 065
  6. DEXAMETHASONE [Suspect]
     Active Substance: DEXAMETHASONE
     Dosage: 20 MILLIGRAM(20 MG ON DAYS 1, 8, 15 AND 22 )
     Route: 065
  7. ENOXAPARIN [Suspect]
     Active Substance: ENOXAPARIN
     Indication: Thrombosis prophylaxis
     Dosage: UNK
     Route: 058
  8. PAMIDRONATE DISODIUM [Suspect]
     Active Substance: PAMIDRONATE DISODIUM
     Indication: Supportive care
     Dosage: UNK
     Route: 065
  9. SULFAMETHOXAZOLE [Suspect]
     Active Substance: SULFAMETHOXAZOLE
     Indication: Antibiotic prophylaxis
     Dosage: UNK(SULFAMETHOXAZOLE WAS ADMINISTERED WITH TRIMETHOPRIM)
     Route: 065
  10. THALIDOMIDE [Suspect]
     Active Substance: THALIDOMIDE
     Indication: Plasma cell myeloma
     Dosage: 100 MILLIGRAM, ONCE A DAY(100 MG PER DAY)
     Route: 065
     Dates: start: 201707
  11. TRIMETHOPRIM [Suspect]
     Active Substance: TRIMETHOPRIM
     Indication: Antibiotic prophylaxis
     Dosage: UNK(TRIMETHOPRIM WAS ADMINISTERED WITH SULFAMETHOXAZOLE)
     Route: 065
  12. SULFAMETHOXAZOLE\TRIMETHOPRIM [Suspect]
     Active Substance: SULFAMETHOXAZOLE\TRIMETHOPRIM
     Indication: Antibiotic prophylaxis
     Dosage: UNK
     Route: 065
     Dates: start: 201707

REACTIONS (5)
  - Neutropenia [Unknown]
  - Polyneuropathy [Recovered/Resolved]
  - Constipation [Unknown]
  - Oedema peripheral [Unknown]
  - Therapeutic product effect incomplete [Unknown]
